FAERS Safety Report 24351785 (Version 1)
Quarter: 2024Q3

REPORT INFORMATION
  Report Type: Report from Study
  Country: US (occurrence: US)
  Receive Date: 20240923
  Receipt Date: 20240923
  Transmission Date: 20241016
  Serious: No
  Sender: ROCHE
  Company Number: US-ROCHE-3567978

PATIENT
  Age: 88 Year
  Sex: Male

DRUGS (2)
  1. HERCEPTIN [Suspect]
     Active Substance: TRASTUZUMAB
     Indication: Skin cancer
     Dosage: MORE DOSAGE INFORMATION IS 150 MG SINGLE-USE VIAL
     Route: 041
     Dates: start: 20230928
  2. HERCEPTIN [Suspect]
     Active Substance: TRASTUZUMAB
     Indication: Oesophageal carcinoma

REACTIONS (2)
  - Off label use [Unknown]
  - No adverse event [Unknown]
